FAERS Safety Report 8210061-X (Version None)
Quarter: 2012Q1

REPORT INFORMATION
  Report Type: 
  Country: None (occurrence: None)
  Receive Date: 20120314
  Receipt Date: 20111108
  Transmission Date: 20120608
  Serious: No
  Sender: FDA-Public Use
  Company Number: US-ASTRAZENECA-2011SE68020

PATIENT
  Age: 76 Year
  Sex: Male

DRUGS (1)
  1. TOPROL-XL [Suspect]
     Indication: HYPERTENSION
     Route: 048
     Dates: start: 20110501

REACTIONS (7)
  - ADVERSE DRUG REACTION [None]
  - SOMNOLENCE [None]
  - DIZZINESS [None]
  - GAIT DISTURBANCE [None]
  - FATIGUE [None]
  - MIDDLE INSOMNIA [None]
  - DIARRHOEA [None]
